FAERS Safety Report 14297545 (Version 2)
Quarter: 2018Q1

REPORT INFORMATION
  Report Type: Spontaneous
  Country: US (occurrence: US)
  Receive Date: 20171218
  Receipt Date: 20180110
  Transmission Date: 20180509
  Serious: No
  Sender: FDA-Public Use
  Company Number: US-PFIZER INC-2017536673

PATIENT
  Age: 32 Year
  Sex: Female
  Weight: 81.65 kg

DRUGS (1)
  1. LIDOCAINE HCL [Suspect]
     Active Substance: LIDOCAINE HYDROCHLORIDE
     Indication: BIOPSY BREAST
     Dates: start: 20171213

REACTIONS (1)
  - Drug ineffective [Unknown]
